FAERS Safety Report 6073143-7 (Version None)
Quarter: 2009Q1

REPORT INFORMATION
  Report Type: 
  Country: None (occurrence: None)
  Receive Date: 20090211
  Receipt Date: 20090209
  Transmission Date: 20090719
  Serious: Yes (Death)
  Sender: FDA-Public Use
  Company Number: US-ASTRAZENECA-2009UW03597

PATIENT
  Sex: Female
  Weight: 40.8 kg

DRUGS (2)
  1. NEXIUM [Suspect]
     Indication: DYSPEPSIA
     Route: 048
  2. LOTS OF DIFFERENT MEDICATIONS [Concomitant]

REACTIONS (1)
  - DEATH [None]
